FAERS Safety Report 14894726 (Version 1)
Quarter: 2018Q2

REPORT INFORMATION
  Report Type: Spontaneous
  Country: AU (occurrence: AU)
  Receive Date: 20180515
  Receipt Date: 20180515
  Transmission Date: 20180711
  Serious: Yes (Hospitalization)
  Sender: FDA-Public Use
  Company Number: AU-CIPLA LTD.-2018AU17795

PATIENT

DRUGS (7)
  1. CETIRIZINE [Suspect]
     Active Substance: CETIRIZINE HYDROCHLORIDE
     Indication: DERMATITIS ATOPIC
     Dosage: 5 MG, DAILY, REGULARLY EVERY MORNING, LONG-TERM AND HIGH-DOSE
     Route: 065
  2. CETIRIZINE [Suspect]
     Active Substance: CETIRIZINE HYDROCHLORIDE
     Dosage: 5 MG, BID, OCCASIONALLY, LONG TERM FOR SEVERAL YEARS AS PART OF ITCH MANAGEMENT
     Route: 065
  3. EPADERM [Concomitant]
     Active Substance: MINERAL OIL\PETROLATUM\WAX, EMULSIFYING
     Indication: DERMATITIS ATOPIC
     Dosage: UNK, REGULAR USE
     Route: 065
  4. TRIAMCINOLONE                      /00031902/ [Concomitant]
     Active Substance: TRIAMCINOLONE ACETONIDE
     Indication: PRODUCT USED FOR UNKNOWN INDICATION
     Dosage: UNK, REGULAR USE
     Route: 065
  5. CETIRIZINE [Suspect]
     Active Substance: CETIRIZINE HYDROCHLORIDE
     Dosage: 5 MG, THREE DOSES, THE NIGHT BEFORE HOSPITALIZATION
     Route: 065
  6. HYDROCORTISONE. [Concomitant]
     Active Substance: HYDROCORTISONE
     Indication: PRODUCT USED FOR UNKNOWN INDICATION
     Dosage: UNK, REGULAR USE
     Route: 065
  7. PREDNISOLONE. [Concomitant]
     Active Substance: PREDNISOLONE
     Indication: PRODUCT USED FOR UNKNOWN INDICATION
     Dosage: UNK
     Route: 065

REACTIONS (6)
  - Tardive dyskinesia [Unknown]
  - Inappropriate schedule of drug administration [Unknown]
  - Dystonia [Unknown]
  - Incorrect drug administration duration [Unknown]
  - Tachycardia [Unknown]
  - Eczema [Unknown]
